FAERS Safety Report 24001006 (Version 1)
Quarter: 2024Q2

REPORT INFORMATION
  Report Type: Spontaneous
  Country: CA (occurrence: CA)
  Receive Date: 20240621
  Receipt Date: 20240621
  Transmission Date: 20240716
  Serious: Yes (Death, Life-Threatening, Hospitalization, Other)
  Sender: FDA-Public Use
  Company Number: CA-009507513-2406CAN006959

PATIENT
  Age: 54 Year
  Sex: Male
  Weight: 84 kg

DRUGS (8)
  1. KEYTRUDA [Suspect]
     Active Substance: PEMBROLIZUMAB
     Indication: Metastatic renal cell carcinoma
     Dosage: 184.0 MILLIGRAM
     Route: 042
  2. APIXABAN [Concomitant]
     Active Substance: APIXABAN
  3. ATORVASTATIN [Concomitant]
     Active Substance: ATORVASTATIN
     Route: 065
  4. HYDROCHLOROTHIAZIDE [Concomitant]
     Active Substance: HYDROCHLOROTHIAZIDE
  5. INLYTA [Concomitant]
     Active Substance: AXITINIB
  6. LORAZEPAM [Concomitant]
     Active Substance: LORAZEPAM
     Route: 065
  7. PERINDOPRIL [Concomitant]
     Active Substance: PERINDOPRIL
  8. SERTRALINE [Concomitant]
     Active Substance: SERTRALINE HYDROCHLORIDE

REACTIONS (8)
  - Acute myocardial infarction [Fatal]
  - Brain injury [Fatal]
  - Cardiac arrest [Fatal]
  - Dehydration [Fatal]
  - Acute kidney injury [Fatal]
  - Hypokalaemia [Fatal]
  - Immune-mediated enterocolitis [Fatal]
  - Myocarditis [Fatal]
